FAERS Safety Report 4627960-8 (Version None)
Quarter: 2005Q2

REPORT INFORMATION
  Report Type: 
  Country: None (occurrence: None)
  Receive Date: 20050401
  Receipt Date: 20050321
  Transmission Date: 20051028
  Serious: Yes (Hospitalization, Other)
  Sender: FDA-Public Use
  Company Number: 2005047273

PATIENT
  Age: 34 Year
  Sex: Male

DRUGS (3)
  1. BEXTRA [Suspect]
     Indication: BACK PAIN
     Dosage: 40 MG (1 D), ORAL
     Route: 048
     Dates: start: 20050105, end: 20050110
  2. BREXIDOL             (PIROXICAM BETADEX) [Suspect]
     Indication: BACK PAIN
     Dosage: 20 MG (1 D), ORAL
     Route: 048
     Dates: start: 20050113, end: 20050120
  3. DICLOFENAC SODIUM [Suspect]
     Indication: BACK PAIN
     Dosage: 150 MG (1 D), ORAL
     Route: 048
     Dates: start: 20050120, end: 20050122

REACTIONS (5)
  - ANAEMIA [None]
  - DUODENAL ULCER [None]
  - HAEMATEMESIS [None]
  - HYPOTENSION [None]
  - MELAENA [None]
